FAERS Safety Report 7432930-0 (Version None)
Quarter: 2011Q2

REPORT INFORMATION
  Report Type: 
  Country: None (occurrence: None)
  Receive Date: 20110422
  Receipt Date: 20110419
  Transmission Date: 20111010
  Serious: No
  Sender: FDA-Public Use
  Company Number: US-PFIZER INC-2011066323

PATIENT
  Sex: Female
  Weight: 83.9 kg

DRUGS (17)
  1. POTASSIUM CITRATE [Concomitant]
     Dosage: UNK
  2. MULTI-VITAMINS [Concomitant]
     Dosage: UNK
  3. FUROSEMIDE [Concomitant]
     Dosage: UNK
  4. DIAZEPAM [Concomitant]
     Dosage: UNK
  5. METFORMIN [Concomitant]
     Dosage: UNK
  6. ZETIA [Concomitant]
     Dosage: UNK
  7. LISINOPRIL [Concomitant]
     Dosage: UNK
  8. NEXIUM [Concomitant]
     Dosage: UNK
  9. TOVIAZ [Suspect]
     Indication: INCONTINENCE
     Dosage: 8 MG, UNK
     Route: 048
     Dates: start: 20110317, end: 20110328
  10. GABAPENTIN [Concomitant]
     Dosage: UNK
  11. ACETYLSALICYLIC ACID [Concomitant]
     Dosage: UNK
  12. CALCIUM WITH VITAMIN D [Concomitant]
     Dosage: UNK
  13. TOVIAZ [Suspect]
     Indication: HYPERTONIC BLADDER
     Dosage: 4 MG, DAILY
     Route: 048
     Dates: start: 20110317
  14. SERTRALINE [Concomitant]
     Dosage: UNK
  15. PRAVASTATIN [Concomitant]
     Dosage: UNK
  16. OXYBUTYNIN [Concomitant]
     Dosage: UNK
  17. PREDNISONE [Concomitant]
     Dosage: UNK

REACTIONS (2)
  - DRUG INEFFECTIVE [None]
  - URINARY INCONTINENCE [None]
